FAERS Safety Report 8041632-1 (Version None)
Quarter: 2012Q1

REPORT INFORMATION
  Report Type: 
  Country: None (occurrence: None)
  Receive Date: 20120112
  Receipt Date: 20120104
  Transmission Date: 20120608
  Serious: Yes (Other)
  Sender: FDA-Public Use
  Company Number: GR-JNJFOC-20111212740

PATIENT
  Sex: Female

DRUGS (4)
  1. COSMETICS [Suspect]
     Route: 061
  2. COSMETICS [Suspect]
     Indication: ALOPECIA
     Route: 061
  3. MINOXIDIL [Suspect]
     Indication: ALOPECIA
     Route: 061
     Dates: start: 20110928
  4. MINOXIDIL [Suspect]
     Route: 061

REACTIONS (3)
  - VISION BLURRED [None]
  - MIGRAINE [None]
  - WRONG TECHNIQUE IN DRUG USAGE PROCESS [None]
